FAERS Safety Report 13974271 (Version 4)
Quarter: 2018Q2

REPORT INFORMATION
  Report Type: Spontaneous
  Country: BR (occurrence: BR)
  Receive Date: 20170915
  Receipt Date: 20180425
  Transmission Date: 20180711
  Serious: Yes (Other)
  Sender: FDA-Public Use
  Company Number: BR-ABBVIE-17K-020-2100020-00

PATIENT
  Age: 25 Year
  Sex: Female
  Weight: 108 kg

DRUGS (9)
  1. PENTASA [Concomitant]
     Active Substance: MESALAMINE
     Indication: CROHN^S DISEASE
     Route: 048
     Dates: start: 2014
  2. ESCITALOPRAM [Concomitant]
     Active Substance: ESCITALOPRAM OXALATE
     Indication: PRODUCT USED FOR UNKNOWN INDICATION
  3. HUMIRA [Suspect]
     Active Substance: ADALIMUMAB
     Route: 058
  4. HUMIRA [Suspect]
     Active Substance: ADALIMUMAB
     Route: 058
  5. AZATHIOPRINE. [Concomitant]
     Active Substance: AZATHIOPRINE
     Indication: CROHN^S DISEASE
     Route: 048
  6. MESALAZINE [Concomitant]
     Active Substance: MESALAMINE
     Indication: CROHN^S DISEASE
     Route: 054
     Dates: start: 2014
  7. HUMIRA [Suspect]
     Active Substance: ADALIMUMAB
     Indication: CROHN^S DISEASE
     Route: 058
     Dates: start: 20170903, end: 20170903
  8. HUMIRA [Suspect]
     Active Substance: ADALIMUMAB
     Route: 058
  9. MODULEN IBD [Concomitant]
     Active Substance: CARBOHYDRATES\FATTY ACIDS\MINERALS\PROTEIN\VITAMINS
     Indication: CROHN^S DISEASE
     Route: 048
     Dates: start: 201707

REACTIONS (10)
  - Hypertension [Not Recovered/Not Resolved]
  - Mucous stools [Recovering/Resolving]
  - Rectal lesion [Unknown]
  - Anal fistula [Unknown]
  - Iron deficiency [Unknown]
  - Influenza [Not Recovered/Not Resolved]
  - Crohn^s disease [Recovering/Resolving]
  - Drug ineffective [Unknown]
  - Anal erosion [Unknown]
  - Blood test abnormal [Unknown]

NARRATIVE: CASE EVENT DATE: 20170903
